FAERS Safety Report 7554608-5 (Version None)
Quarter: 2011Q2

REPORT INFORMATION
  Report Type: 
  Country: None (occurrence: None)
  Receive Date: 20110617
  Receipt Date: 20110605
  Transmission Date: 20111010
  Serious: Yes (Other)
  Sender: FDA-Public Use
  Company Number: DE-ROCHE-782824

PATIENT
  Age: 51 Year
  Sex: Male

DRUGS (1)
  1. ACTEMRA [Suspect]
     Indication: RHEUMATOID ARTHRITIS
     Dosage: LAST KNOWN APPLICATION WAS ON 30 MAY 2011.
     Route: 042
     Dates: start: 20100801

REACTIONS (4)
  - DIARRHOEA HAEMORRHAGIC [None]
  - MUSCULOSKELETAL PAIN [None]
  - ABDOMINAL PAIN UPPER [None]
  - MALAISE [None]
